FAERS Safety Report 8190531-3 (Version None)
Quarter: 2012Q1

REPORT INFORMATION
  Report Type: 
  Country: None (occurrence: None)
  Receive Date: 20120221
  Receipt Date: 20111209
  Transmission Date: 20120608
  Serious: No
  Sender: FDA-Public Use
  Company Number: 1000026167

PATIENT
  Age: 71 Year
  Sex: Female

DRUGS (3)
  1. VIIBRYD [Suspect]
     Indication: ANXIETY
     Dosage: 5 MG (5 MG, 1 IN 1 D), ORAL
     Route: 048
     Dates: start: 20111207
  2. REMERON [Concomitant]
  3. VALIUM [Concomitant]

REACTIONS (3)
  - NAUSEA [None]
  - TREMOR [None]
  - OFF LABEL USE [None]
